FAERS Safety Report 7928203-X (Version None)
Quarter: 2011Q4

REPORT INFORMATION
  Report Type: 
  Country: None (occurrence: None)
  Receive Date: 20111118
  Receipt Date: 20111114
  Transmission Date: 20120403
  Serious: Yes (Other)
  Sender: FDA-Public Use
  Company Number: US-JNJFOC-20111103810

PATIENT
  Sex: Male

DRUGS (2)
  1. ROGAINE EXTRA STRENGTH (FOR MEN) [Suspect]
     Route: 061
  2. ROGAINE EXTRA STRENGTH (FOR MEN) [Suspect]
     Indication: PRODUCT USED FOR UNKNOWN INDICATION
     Route: 061
     Dates: start: 20110819, end: 20111101

REACTIONS (3)
  - DYSPNOEA [None]
  - TINNITUS [None]
  - DIZZINESS [None]
